FAERS Safety Report 5164959-X (Version None)
Quarter: 2006Q4

REPORT INFORMATION
  Report Type: 
  Country: None (occurrence: None)
  Receive Date: 20061124
  Receipt Date: 20061113
  Transmission Date: 20070319
  Serious: Yes (Other)
  Sender: FDA-Public Use
  Company Number: 2006141725

PATIENT
  Sex: Male

DRUGS (2)
  1. XALATAN [Suspect]
  2. ENALAPRIL MALEATE [Concomitant]

REACTIONS (1)
  - VITAMIN B12 INCREASED [None]
